FAERS Safety Report 10355723 (Version 8)
Quarter: 2015Q3

REPORT INFORMATION
  Report Type: Report from Study
  Country: BR (occurrence: BR)
  Receive Date: 20140731
  Receipt Date: 20150917
  Transmission Date: 20151125
  Serious: Yes (Other)
  Sender: FDA-Public Use
  Company Number: BR-EXELIXIS-XL18414004557

PATIENT
  Age: 24 Year
  Sex: Male

DRUGS (7)
  1. METOCLOPRAMIDE. [Concomitant]
     Active Substance: METOCLOPRAMIDE
  2. XL184 [Suspect]
     Active Substance: CABOZANTINIB
     Indication: MEDULLARY THYROID CANCER
     Dosage: 175 MG, QD
     Route: 048
     Dates: start: 20110119
  3. ALUMINUM HYDROXIDE. [Concomitant]
     Active Substance: ALUMINUM HYDROXIDE
  4. XL184 [Suspect]
     Active Substance: CABOZANTINIB
     Dosage: 75 MG, QD
     Route: 048
  5. DRAMAMINE [Concomitant]
     Active Substance: DIMENHYDRINATE
  6. FERROUS SULFATE [Concomitant]
     Active Substance: FERROUS SULFATE\FERROUS SULFATE, DRIED
  7. FOLIC ACID. [Concomitant]
     Active Substance: FOLIC ACID

REACTIONS (1)
  - Pregnancy of partner [Recovered/Resolved]

NARRATIVE: CASE EVENT DATE: 201406
